FAERS Safety Report 8451764-1 (Version None)
Quarter: 2012Q2

REPORT INFORMATION
  Report Type: 
  Country: None (occurrence: None)
  Receive Date: 20120620
  Receipt Date: 20120327
  Transmission Date: 20120825
  Serious: No
  Sender: FDA-Public Use
  Company Number: US-VERTEX PHARMACEUTICALS INC.-AE-2012-003845

PATIENT
  Sex: Female
  Weight: 56.296 kg

DRUGS (5)
  1. AMBIEN [Concomitant]
  2. INCIVEK [Suspect]
     Indication: HEPATITIS C
     Route: 048
     Dates: start: 20120309
  3. RIBAVIRIN [Concomitant]
     Indication: HEPATITIS C
     Route: 048
     Dates: start: 20120314, end: 20120319
  4. RIBAVIRIN [Concomitant]
     Dates: start: 20120319
  5. PEGINTERFERON ALFA-2A [Concomitant]
     Indication: HEPATITIS C
     Route: 058
     Dates: start: 20120309

REACTIONS (6)
  - RASH GENERALISED [None]
  - DIZZINESS [None]
  - BLOOD PRESSURE DECREASED [None]
  - BLOOD CREATININE INCREASED [None]
  - NAUSEA [None]
  - PRURITUS [None]
